FAERS Safety Report 17729545 (Version 1)
Quarter: 2020Q2

REPORT INFORMATION
  Report Type: Spontaneous
  Country: US (occurrence: US)
  Receive Date: 20200430
  Receipt Date: 20200430
  Transmission Date: 20200714
  Serious: No
  Sender: FDA-Public Use
  Company Number: US-TEVA-2020-US-1224970

PATIENT

DRUGS (1)
  1. TRIAMTERENE/HYDROCHLOROTHIAZIDE [Suspect]
     Active Substance: HYDROCHLOROTHIAZIDE\TRIAMTERENE
     Indication: HYPERTENSION
     Dosage: TRIAMTERENE WAS 37.5 MG AND HYDROCHLOROTHIAZIDE WAS 25 MG
     Route: 065
     Dates: start: 202002

REACTIONS (1)
  - Drug ineffective [Unknown]
